FAERS Safety Report 6386156-2 (Version None)
Quarter: 2009Q4

REPORT INFORMATION
  Report Type: 
  Country: None (occurrence: None)
  Receive Date: 20091002
  Receipt Date: 20081231
  Transmission Date: 20100525
  Serious: No
  Sender: FDA-Public Use
  Company Number: US-ASTRAZENECA-2008UW29010

PATIENT
  Age: 78 Year
  Sex: Female
  Weight: 47.2 kg

DRUGS (7)
  1. ARIMIDEX [Suspect]
     Indication: BREAST CANCER
     Dosage: UNKNOWN
     Route: 048
     Dates: start: 20080801
  2. LISINOPRIL [Concomitant]
     Route: 048
  3. DIURETIC [Concomitant]
  4. SYNTHROID [Concomitant]
  5. CALCIUM W/VITAMIN D [Concomitant]
  6. MULTI-VITAMINS [Concomitant]
  7. FIBER [Concomitant]

REACTIONS (5)
  - AMNESIA [None]
  - ARTHRALGIA [None]
  - ASTHENIA [None]
  - DRY EYE [None]
  - HOT FLUSH [None]
